FAERS Safety Report 11231039 (Version 1)
Quarter: 2015Q3

REPORT INFORMATION
  Report Type: Report from Study
  Country: TW (occurrence: TW)
  Receive Date: 20150701
  Receipt Date: 20150701
  Transmission Date: 20151125
  Serious: Yes (Hospitalization)
  Sender: FDA-Public Use
  Company Number: TW-ROCHE-631926

PATIENT
  Age: 61 Year
  Sex: Female
  Weight: 55.5 kg

DRUGS (26)
  1. MEGESTROL ACETATE. [Concomitant]
     Active Substance: MEGESTROL ACETATE
     Dosage: TDD REPORTED AS 20/CC
     Route: 065
  2. SULFAMETHOXAZOLE/TRIMETHOPRIM [Concomitant]
     Active Substance: SULFAMETHOXAZOLE\TRIMETHOPRIM
     Dosage: TDD: 800/MG
     Route: 065
  3. PENTOXIFYLLINE. [Concomitant]
     Active Substance: PENTOXIFYLLINE
     Route: 065
  4. PENTOXIFYLLINE. [Concomitant]
     Active Substance: PENTOXIFYLLINE
     Route: 065
  5. COMBIZYM [Concomitant]
     Route: 065
  6. FOLIC ACID. [Concomitant]
     Active Substance: FOLIC ACID
     Dosage: TDD: 5/MG
     Route: 065
  7. BIPERIDEN [Concomitant]
     Active Substance: BIPERIDEN
     Dosage: TDD: 6/MG.
     Route: 065
     Dates: start: 20090507, end: 20090522
  8. ESTAZOLAM. [Concomitant]
     Active Substance: ESTAZOLAM
     Route: 065
  9. ALPRAZOLAM. [Concomitant]
     Active Substance: ALPRAZOLAM
     Route: 065
  10. CYCLOPHOSPHAMIDE. [Suspect]
     Active Substance: CYCLOPHOSPHAMIDE
     Indication: DIFFUSE LARGE B-CELL LYMPHOMA
     Dosage: FORM: INFUSION. LAST DOSE RECEIVED ON 22 MAY 2009.
     Route: 042
  11. PREDNISOLONE. [Suspect]
     Active Substance: PREDNISOLONE
     Indication: DIFFUSE LARGE B-CELL LYMPHOMA
     Dosage: LAST DOSE RECEIVED ON 22 MAY 2009.
     Route: 048
  12. PANTOPRAZOLE [Concomitant]
     Active Substance: PANTOPRAZOLE SODIUM
     Route: 065
  13. LORAZEPAM. [Concomitant]
     Active Substance: LORAZEPAM
     Dosage: TDD: 2/MG
     Route: 065
     Dates: start: 20090506, end: 20090506
  14. MEPHENOXALONE [Concomitant]
     Active Substance: MEPHENOXALONE
     Route: 065
     Dates: start: 20090507, end: 20090522
  15. COMBIZYM [Concomitant]
     Route: 065
  16. RITUXIMAB [Suspect]
     Active Substance: RITUXIMAB
     Indication: DIFFUSE LARGE B-CELL LYMPHOMA
     Dosage: FORM: INFUSION, FREQUENCY: Q21D. LAST DOSE PRIOR TO SAE RECEIVED ON 22 MAY 2009.
     Route: 042
  17. VINCRISTINE [Suspect]
     Active Substance: VINCRISTINE
     Indication: DIFFUSE LARGE B-CELL LYMPHOMA
     Dosage: ROUTE: IVD. LAST DOSE RECEIVED ON 22 MAY 2009.
     Route: 042
  18. DOXORUBICIN [Suspect]
     Active Substance: DOXORUBICIN
     Indication: DIFFUSE LARGE B-CELL LYMPHOMA
     Dosage: ROUTE: IVD. LAST DOSE PRIOR TO SAE RECEIVED ON 30 APRIL 2009.
     Route: 042
     Dates: start: 20090114, end: 20090521
  19. CHLORHEXIDINE [Concomitant]
     Active Substance: CHLORHEXIDINE
     Dosage: TDD: 30/CC
     Route: 061
     Dates: start: 20090112, end: 20090602
  20. BEVACIZUMAB [Suspect]
     Active Substance: BEVACIZUMAB
     Indication: DIFFUSE LARGE B-CELL LYMPHOMA
     Dosage: FREQUENCY REPORTED AS Q21D. FORM: INFUSION. LAST DOSE PRIOR TO SAE RECEIVED ON 30 APRIL 2009.
     Route: 042
     Dates: start: 20090113, end: 20090521
  21. ROTEC [Concomitant]
     Dosage: TDD: 3/TAB
     Route: 065
  22. MIRTAZAPINE. [Concomitant]
     Active Substance: MIRTAZAPINE
     Route: 065
  23. METOCLOPRAMIDE. [Concomitant]
     Active Substance: METOCLOPRAMIDE
     Dosage: TDD: 1/ CAP
     Route: 065
  24. METOCLOPRAMIDE. [Concomitant]
     Active Substance: METOCLOPRAMIDE
     Route: 065
     Dates: start: 20090501, end: 20090508
  25. DIAZEPAM. [Concomitant]
     Active Substance: DIAZEPAM
     Dosage: TDD: 0.5/MG.
     Route: 065
     Dates: start: 20090506, end: 20090506
  26. FILGRASTIM [Concomitant]
     Active Substance: FILGRASTIM
     Route: 065
     Dates: start: 20090507, end: 20090507

REACTIONS (3)
  - Left ventricular dysfunction [Not Recovered/Not Resolved]
  - Major depression [Recovering/Resolving]
  - Herpes zoster [Recovering/Resolving]

NARRATIVE: CASE EVENT DATE: 20090430
